FAERS Safety Report 11568075 (Version 2)
Quarter: 2015Q4

REPORT INFORMATION
  Report Type: Spontaneous
  Country: US (occurrence: US)
  Receive Date: 20150929
  Receipt Date: 20151005
  Transmission Date: 20160304
  Serious: Yes (Death, Hospitalization, Other)
  Sender: FDA-Public Use
  Company Number: US-009507513-1509USA013916

PATIENT
  Sex: Male
  Weight: 117.91 kg

DRUGS (4)
  1. JANUMET [Suspect]
     Active Substance: METFORMIN HYDROCHLORIDE\SITAGLIPTIN PHOSPHATE
     Indication: TYPE 2 DIABETES MELLITUS
     Dosage: 50-1000 MG, BID
     Route: 048
     Dates: start: 20080101, end: 20081222
  2. JANUVIA [Suspect]
     Active Substance: SITAGLIPTIN PHOSPHATE
     Indication: TYPE 2 DIABETES MELLITUS
     Dosage: 100 MG, QD
     Route: 048
     Dates: start: 20070905, end: 200712
  3. BYETTA [Suspect]
     Active Substance: EXENATIDE
     Dosage: 10 MICROGRAM, BID
     Dates: start: 20111013, end: 20120221
  4. BYETTA [Suspect]
     Active Substance: EXENATIDE
     Indication: TYPE 2 DIABETES MELLITUS
     Dosage: 5 MICROGRAM, BID
     Dates: start: 20110801, end: 201109

REACTIONS (21)
  - Insulin-requiring type 2 diabetes mellitus [Unknown]
  - Oedema peripheral [Unknown]
  - Pneumobilia [Unknown]
  - Drug ineffective [Unknown]
  - Ascites [Unknown]
  - Biliary cancer metastatic [Unknown]
  - Leukocytosis [Unknown]
  - Death [Fatal]
  - Pleural effusion [Unknown]
  - Metastases to liver [Unknown]
  - Nephritis [Unknown]
  - Hyperlipidaemia [Unknown]
  - Atelectasis [Unknown]
  - Thrombocytopenia [Unknown]
  - Lung disorder [Unknown]
  - Hyperkalaemia [Recovered/Resolved]
  - Acute kidney injury [Unknown]
  - Pancreatic neuroendocrine tumour metastatic [Unknown]
  - Hyponatraemia [Unknown]
  - Microcytic anaemia [Unknown]
  - Tonsillectomy [Unknown]

NARRATIVE: CASE EVENT DATE: 201309
